FAERS Safety Report 12541320 (Version 2)
Quarter: 2016Q3

REPORT INFORMATION
  Report Type: Spontaneous
  Country: CN (occurrence: CN)
  Receive Date: 20160708
  Receipt Date: 20160901
  Transmission Date: 20161109
  Serious: Yes (Death)
  Sender: FDA-Public Use
  Company Number: CN-JNJFOC-20160702438

PATIENT

DRUGS (1)
  1. PALIPERDONE [Suspect]
     Active Substance: PALIPERIDONE
     Indication: SCHIZOPHRENIA
     Dosage: 3-12 MG
     Route: 048

REACTIONS (7)
  - Somnolence [Unknown]
  - Nasopharyngitis [Unknown]
  - Constipation [Unknown]
  - Akathisia [Unknown]
  - Completed suicide [Fatal]
  - Extrapyramidal disorder [Unknown]
  - Schizophrenia [Unknown]
